FAERS Safety Report 4351520-X (Version None)
Quarter: 2004Q2

REPORT INFORMATION
  Report Type: 
  Country: None (occurrence: None)
  Receive Date: 20040430
  Receipt Date: 20040430
  Transmission Date: 20050107
  Serious: Yes (Life-Threatening, Disabling, Other)
  Sender: FDA-Public Use
  Company Number: None

PATIENT
  Age: 27 Year
  Sex: Female
  Weight: 63.5036 kg

DRUGS (2)
  1. PAXIL [Suspect]
     Indication: ANXIETY
     Dosage: 20 MG DAILY
  2. PAXIL [Suspect]
     Indication: DEPRESSION
     Dosage: 20 MG DAILY

REACTIONS (7)
  - CHILLS [None]
  - DRUG WITHDRAWAL SYNDROME [None]
  - HOT FLUSH [None]
  - MUSCLE CRAMP [None]
  - NIGHTMARE [None]
  - PANIC ATTACK [None]
  - VISION BLURRED [None]
